FAERS Safety Report 6718102-3 (Version None)
Quarter: 2010Q2

REPORT INFORMATION
  Report Type: 
  Country: None (occurrence: None)
  Receive Date: 20100510
  Receipt Date: 20100428
  Transmission Date: 20101027
  Serious: Yes (Death, Congenital Anomaly)
  Sender: FDA-Public Use
  Company Number: A0851846A

PATIENT
  Sex: Male

DRUGS (1)
  1. PAXIL [Suspect]
     Indication: DEPRESSION
     Dosage: 40MG UNKNOWN
     Dates: start: 20030203

REACTIONS (16)
  - CANDIDIASIS [None]
  - CARDIAC MURMUR [None]
  - CONGENITAL ANOMALY [None]
  - DEATH [None]
  - DRUG EXPOSURE DURING PREGNANCY [None]
  - DUODENAL ATRESIA [None]
  - MULTI-ORGAN FAILURE [None]
  - OEDEMA [None]
  - PREMATURE BABY [None]
  - RENAL FAILURE [None]
  - RESPIRATORY DISTRESS [None]
  - RESPIRATORY FAILURE [None]
  - RESPIRATORY GAS EXCHANGE DISORDER [None]
  - SEPSIS [None]
  - SINGLE UMBILICAL ARTERY [None]
  - SOLITARY KIDNEY [None]
